FAERS Safety Report 10036088 (Version 2)
Quarter: 2014Q2

REPORT INFORMATION
  Report Type: Spontaneous
  Country: BR (occurrence: BR)
  Receive Date: 20140325
  Receipt Date: 20140401
  Transmission Date: 20141212
  Serious: No
  Sender: FDA-Public Use
  Company Number: BR-PFIZER INC-2014083133

PATIENT
  Age: 83 Year
  Sex: Female
  Weight: 70 kg

DRUGS (7)
  1. ATENOLOL [Suspect]
     Indication: HYPERTENSION
     Dosage: 25 MG, DAILY
     Route: 048
     Dates: start: 201402
  2. ATACAND HCT [Suspect]
     Indication: HYPERTENSION
     Dosage: 1X/DAY, EVERY MORNING
     Route: 048
     Dates: start: 2008
  3. INSULIN [Concomitant]
     Indication: DIABETES MELLITUS
     Dosage: UNK, DAILY
     Route: 058
  4. INSULIN [Concomitant]
     Indication: DIABETES MELLITUS
     Dosage: UNK, DAILY
     Route: 058
  5. CITONEURIN [Concomitant]
     Indication: VITAMIN D DEFICIENCY
     Dosage: 5000, DAILY
     Route: 048
  6. CITICOLINE [Concomitant]
     Indication: CEREBROVASCULAR ACCIDENT
     Dosage: UNK, DAILY
     Route: 048
     Dates: start: 201304
  7. GALVUS [Concomitant]
     Indication: DIABETES MELLITUS
     Dosage: 50 MG, DAILY
     Route: 048

REACTIONS (2)
  - Pain in extremity [Not Recovered/Not Resolved]
  - Pain [Not Recovered/Not Resolved]
